FAERS Safety Report 7302134-0 (Version None)
Quarter: 2011Q1

REPORT INFORMATION
  Report Type: 
  Country: None (occurrence: None)
  Receive Date: 20110207
  Receipt Date: 20110127
  Transmission Date: 20110831
  Serious: Yes (Hospitalization)
  Sender: FDA-Public Use
  Company Number: WAES 1101USA03594

PATIENT
  Age: 21 Year
  Sex: Male
  Weight: 66.2252 kg

DRUGS (4)
  1. CLINDAMYCIN [Concomitant]
  2. ISENTRESS [Suspect]
     Indication: HIV INFECTION
     Dosage: PO
     Route: 048
  3. TAB DARUNAVIR 400 MG [Suspect]
     Indication: HIV INFECTION
     Dosage: 800 MG/DAILY/PO
     Route: 048
     Dates: start: 20100503
  4. ALBUTEROL SULFATE [Concomitant]

REACTIONS (1)
  - ANAL ABSCESS [None]
